FAERS Safety Report 8912014 (Version 6)
Quarter: 2016Q3

REPORT INFORMATION
  Report Type: Spontaneous
  Country: JP (occurrence: JP)
  Receive Date: 20121115
  Receipt Date: 20160928
  Transmission Date: 20161109
  Serious: Yes (Death, Hospitalization, Other)
  Sender: FDA-Public Use
  Company Number: JP-OTSUKA-JP-2012-16788

PATIENT
  Age: 76 Year
  Sex: Male
  Weight: 59 kg

DRUGS (6)
  1. PLETAAL OD TABLETS 100MG [Suspect]
     Active Substance: CILOSTAZOL
     Indication: CAROTID ARTERY STENOSIS
     Dosage: 50 MG, BID
     Route: 048
     Dates: start: 20120312, end: 20120329
  2. PLAVIX [Suspect]
     Active Substance: CLOPIDOGREL BISULFATE
     Indication: CAROTID ARTERY STENOSIS
     Dosage: 75 MG, QD
     Route: 048
     Dates: start: 20120214, end: 20120604
  3. PLAVIX [Suspect]
     Active Substance: CLOPIDOGREL BISULFATE
     Indication: CAROTID ARTERY STENT INSERTION
  4. TAKEPRON [Suspect]
     Active Substance: LANSOPRAZOLE
     Indication: PROPHYLAXIS
     Dosage: 15 MG, QD
     Route: 048
     Dates: start: 20120312, end: 20120604
  5. PLETAAL OD TABLETS 100MG [Suspect]
     Active Substance: CILOSTAZOL
     Indication: CAROTID ARTERY STENT INSERTION
     Dosage: 100 MG, QD
     Route: 048
     Dates: start: 20120330, end: 20120604
  6. BAYASPIRIN [Concomitant]
     Active Substance: ASPIRIN
     Indication: CORONARY ANGIOPLASTY
     Dosage: UNK
     Route: 048
     Dates: start: 2002

REACTIONS (2)
  - Pneumocystis jirovecii pneumonia [Fatal]
  - Interstitial lung disease [Recovering/Resolving]

NARRATIVE: CASE EVENT DATE: 20120604
